FAERS Safety Report 8308716-1 (Version None)
Quarter: 2012Q1

REPORT INFORMATION
  Report Type: 
  Country: None (occurrence: None)
  Receive Date: 20120327
  Receipt Date: 20110310
  Transmission Date: 20120608
  Serious: Yes (Other)
  Sender: FDA-Public Use
  Company Number: PHHY2011US12188

PATIENT
  Age: 76 Year
  Sex: Female

DRUGS (2)
  1. GLEEVEC [Suspect]
     Indication: CHRONIC MYELOID LEUKAEMIA
     Dosage: 400 MG, QD, ORAL, 400 MG, DAILY, ORAL
     Route: 048
     Dates: start: 20080626
  2. GLEEVEC [Suspect]
     Indication: CHRONIC MYELOID LEUKAEMIA
     Dosage: 400 MG, QD, ORAL, 400 MG, DAILY, ORAL
     Route: 048
     Dates: start: 20100304

REACTIONS (5)
  - NAUSEA [None]
  - MUSCLE SPASMS [None]
  - DIARRHOEA [None]
  - CHILLS [None]
  - CELLULITIS [None]
